FAERS Safety Report 18717168 (Version 1)
Quarter: 2021Q1

REPORT INFORMATION
  Report Type: Report from Study
  Country: IL (occurrence: IL)
  Receive Date: 20210108
  Receipt Date: 20210108
  Transmission Date: 20210419
  Serious: Yes (Other)
  Sender: FDA-Public Use
  Company Number: IL-JNJFOC-20210105793

PATIENT
  Age: 5 Decade
  Sex: Female

DRUGS (1)
  1. STELARA [Suspect]
     Active Substance: USTEKINUMAB
     Indication: CROHN^S DISEASE
     Route: 058
     Dates: start: 20180730

REACTIONS (3)
  - Intestinal resection [Unknown]
  - Stoma closure [Unknown]
  - Fistula [Unknown]

NARRATIVE: CASE EVENT DATE: 2020
